FAERS Safety Report 10818426 (Version 1)
Quarter: 2015Q1

REPORT INFORMATION
  Report Type: Spontaneous
  Country: FR (occurrence: FR)
  Receive Date: 20150218
  Receipt Date: 20150218
  Transmission Date: 20150721
  Serious: Yes (Hospitalization)
  Sender: FDA-Public Use
  Company Number: FR-GLAXOSMITHKLINE-FR2015GSK019695

PATIENT
  Age: 58 Year
  Sex: Female
  Weight: 58 kg

DRUGS (16)
  1. EUPANTOL [Concomitant]
     Active Substance: PANTOPRAZOLE SODIUM
     Dosage: 40 MG, QD
     Route: 042
     Dates: start: 20140102, end: 20140130
  2. ZOPHREN [Suspect]
     Active Substance: ONDANSETRON
     Dosage: UNK
     Route: 042
     Dates: start: 20140106, end: 20140116
  3. ZAVEDOS [Concomitant]
     Active Substance: IDARUBICIN
     Indication: ACUTE MYELOID LEUKAEMIA
     Dosage: 19.45 MG, QD
     Route: 042
     Dates: start: 20140106, end: 20140108
  4. ESCITALOPRAM [Concomitant]
     Active Substance: ESCITALOPRAM OXALATE
     Dosage: UNK
     Dates: start: 20140102, end: 20140128
  5. CONTRAMAL [Concomitant]
     Active Substance: TRAMADOL HYDROCHLORIDE
     Dosage: 50 MG, UNK
     Dates: start: 20140103, end: 20140106
  6. AZANTAC [Concomitant]
     Active Substance: RANITIDINE HYDROCHLORIDE
     Dosage: UNK
     Dates: start: 20140102, end: 20140130
  7. CYTARABINE. [Concomitant]
     Active Substance: CYTARABINE
     Indication: ACUTE MYELOID LEUKAEMIA
     Dosage: 342.2 MG, QD
     Route: 042
     Dates: start: 20140106, end: 20140112
  8. VANCOMYCINE [Concomitant]
     Active Substance: VANCOMYCIN
     Dosage: UNK
     Route: 042
     Dates: start: 20140129, end: 20140203
  9. IMOVANE [Concomitant]
     Active Substance: ZOPICLONE
     Dosage: 7.5 MG, QD
     Route: 048
     Dates: start: 20140102, end: 20140128
  10. VANCOMYCINE [Concomitant]
     Active Substance: VANCOMYCIN
     Dosage: UNK
     Dates: start: 20140103, end: 20140203
  11. NOXAFIL [Concomitant]
     Active Substance: POSACONAZOLE
     Dosage: UNK
     Dates: start: 20140117, end: 20140118
  12. PIPERACILLIN AND TAZOBACTAM [Concomitant]
     Active Substance: PIPERACILLIN SODIUM\TAZOBACTAM SODIUM
     Dosage: 4 G, TID
     Dates: start: 20140115, end: 20140127
  13. AMPHOTERICINE B [Concomitant]
     Active Substance: AMPHOTERICIN B
     Dosage: 375 MG, TID
     Route: 048
     Dates: start: 20140102, end: 20140118
  14. AMPHOTERICINE B [Concomitant]
     Active Substance: AMPHOTERICIN B
     Dosage: UNK
     Dates: start: 20140121, end: 20140203
  15. REVLIMID [Suspect]
     Active Substance: LENALIDOMIDE
     Indication: ACUTE MYELOID LEUKAEMIA
     Dosage: 10 MG, QD
     Route: 048
     Dates: start: 20140106, end: 20140117
  16. CLAMOXYL [Suspect]
     Active Substance: AMOXICILLIN\CLAVULANIC ACID
     Dosage: 1 G, TID
     Route: 042
     Dates: start: 20140110, end: 20140115

REACTIONS (2)
  - Pyrexia [Recovered/Resolved]
  - Rash maculo-papular [Recovered/Resolved with Sequelae]

NARRATIVE: CASE EVENT DATE: 20140115
